FAERS Safety Report 25160296 (Version 1)
Quarter: 2025Q2

REPORT INFORMATION
  Report Type: Spontaneous
  Country: US (occurrence: None)
  Receive Date: 20250403
  Receipt Date: 20250403
  Transmission Date: 20250716
  Serious: Yes (Death)
  Sender: FDA-CTU
  Company Number: None

PATIENT
  Age: 54 Year
  Sex: Female

DRUGS (2)
  1. OFEV [Suspect]
     Active Substance: NINTEDANIB
     Indication: Interstitial lung disease
     Dosage: FREQUENCY : TWICE A DAY;?
     Route: 048
     Dates: start: 20231207, end: 20250310
  2. OFEV [Suspect]
     Active Substance: NINTEDANIB

REACTIONS (2)
  - Haemorrhage intracranial [None]
  - Disease complication [None]

NARRATIVE: CASE EVENT DATE: 20250310
